FAERS Safety Report 5239064-4 (Version None)
Quarter: 2007Q1

REPORT INFORMATION
  Report Type: 
  Country: None (occurrence: None)
  Receive Date: 20061208
  Receipt Date: 20050627
  Transmission Date: 20070707
  Serious: Yes (Other)
  Sender: FDA-Public Use
  Company Number: 2005UW09705

PATIENT
  Age: 79 Year
  Sex: Female
  Weight: 72.574 kg

DRUGS (6)
  1. CRESTOR [Suspect]
     Indication: BLOOD CHOLESTEROL INCREASED
     Dosage: 10 MG QD PO
     Route: 048
     Dates: start: 20050601
  2. CRESTOR [Suspect]
     Indication: BLOOD CHOLESTEROL INCREASED
     Dosage: 10 MG QOD PO
     Route: 048
     Dates: start: 20050101
  3. LOPRESSOR [Concomitant]
  4. WARFARIN SODIUM [Concomitant]
  5. NEXIUM [Concomitant]
  6. PREMPLUS [Concomitant]

REACTIONS (1)
  - BURNING SENSATION [None]
